FAERS Safety Report 6696379-0 (Version None)
Quarter: 2010Q2

REPORT INFORMATION
  Report Type: 
  Country: None (occurrence: None)
  Receive Date: 20100426
  Receipt Date: 20100415
  Transmission Date: 20101027
  Serious: Yes (Hospitalization, Other)
  Sender: FDA-Public Use
  Company Number: AT-JNJFOC-20100400442

PATIENT
  Sex: Female
  Weight: 84 kg

DRUGS (4)
  1. GOLIMUMAB [Suspect]
     Indication: RHEUMATOID ARTHRITIS
     Route: 058
  2. GOLIMUMAB [Suspect]
     Route: 058
  3. METHOTREXATE [Concomitant]
  4. MAGNOSOLV [Concomitant]

REACTIONS (2)
  - COMPARTMENT SYNDROME [None]
  - DEEP VEIN THROMBOSIS [None]
